FAERS Safety Report 11241481 (Version 2)
Quarter: 2015Q3

REPORT INFORMATION
  Report Type: Spontaneous
  Country: US (occurrence: US)
  Receive Date: 20150706
  Receipt Date: 20150708
  Transmission Date: 20151125
  Serious: Yes (Hospitalization)
  Sender: FDA-Public Use
  Company Number: US-BAYER-2015-371225

PATIENT
  Age: 31 Year
  Sex: Male
  Weight: 62 kg

DRUGS (1)
  1. PAIN STOPPER EXTRA [Suspect]
     Active Substance: ACETAMINOPHEN\ASPIRIN\CAFFEINE\SALICYLAMIDE
     Dosage: 2 DF, UNK
     Route: 048

REACTIONS (1)
  - Accidental overdose [Unknown]

NARRATIVE: CASE EVENT DATE: 20150630
